FAERS Safety Report 23433171 (Version 1)
Quarter: 2024Q1

REPORT INFORMATION
  Report Type: Spontaneous
  Country: US (occurrence: None)
  Receive Date: 20240123
  Receipt Date: 20240123
  Transmission Date: 20240410
  Serious: No
  Sender: FDA-Public Use
  Company Number: None

PATIENT
  Sex: Female

DRUGS (5)
  1. VIGABATRIN [Suspect]
     Active Substance: VIGABATRIN
     Indication: Congenital hydronephrosis
     Dosage: FREQUENCY : TWICE A DAY;?
     Route: 048
  2. CLONAZEPAM [Concomitant]
     Active Substance: CLONAZEPAM
  3. AFINITOR DISPERZ [Concomitant]
     Active Substance: EVEROLIMUS
  4. EVEROLIMUS [Concomitant]
     Active Substance: EVEROLIMUS
  5. OXCARBAZEPINE [Concomitant]
     Active Substance: OXCARBAZEPINE

REACTIONS (4)
  - Therapy interrupted [None]
  - Wrong technique in product usage process [None]
  - Incorrect dose administered [None]
  - Intentional product misuse [None]
